FAERS Safety Report 8581225-0 (Version None)
Quarter: 2012Q3

REPORT INFORMATION
  Report Type: 
  Country: None (occurrence: None)
  Receive Date: 20120809
  Receipt Date: 20120801
  Transmission Date: 20120928
  Serious: Yes (Hospitalization, Other)
  Sender: FDA-Public Use
  Company Number: PHHY2008JP20294

PATIENT
  Sex: Male
  Weight: 43 kg

DRUGS (7)
  1. FAMOTIDINE [Concomitant]
     Dosage: UNK UKN, UNK
     Route: 048
     Dates: start: 20070417
  2. IMATINIB MESYLATE [Suspect]
     Dosage: 200 MG, QD
     Route: 048
     Dates: start: 20081007
  3. IMATINIB MESYLATE [Suspect]
     Indication: CHRONIC MYELOID LEUKAEMIA
     Dosage: 400 MG, DAILY
     Route: 048
     Dates: start: 20070417, end: 20080807
  4. CALCIUM CARBONATE [Concomitant]
     Dosage: 2 DF, QD
     Route: 048
     Dates: start: 20070417
  5. HYDREA [Concomitant]
     Indication: CHRONIC MYELOID LEUKAEMIA
     Dosage: UNK UKN, UNK
  6. LIVACT [Concomitant]
     Dosage: 2 DF, UNK
     Dates: start: 20070417
  7. IMATINIB MESYLATE [Suspect]
     Dosage: UNK
     Route: 048

REACTIONS (9)
  - INTERSTITIAL LUNG DISEASE [None]
  - CONCOMITANT DISEASE AGGRAVATED [None]
  - OXYGEN SATURATION DECREASED [None]
  - FAECES DISCOLOURED [None]
  - RENAL FAILURE CHRONIC [None]
  - GASTRIC HAEMORRHAGE [None]
  - ANAEMIA [None]
  - RASH [None]
  - GASTRIC ANTRAL VASCULAR ECTASIA [None]
